FAERS Safety Report 5730752-X (Version None)
Quarter: 2008Q2

REPORT INFORMATION
  Report Type: 
  Country: None (occurrence: None)
  Receive Date: 20080507
  Receipt Date: 20080429
  Transmission Date: 20081010
  Serious: Yes (Hospitalization, Other)
  Sender: FDA-Public Use
  Company Number: US-PFIZER INC-2007068521

PATIENT
  Age: 50 Year
  Sex: Female
  Weight: 74.5 kg

DRUGS (9)
  1. CHANTIX [Suspect]
     Indication: SMOKING CESSATION THERAPY
  2. OTHER NERVOUS SYSTEM DRUGS [Concomitant]
  3. PERCOCET [Concomitant]
  4. NEXIUM [Concomitant]
  5. ZOCOR [Concomitant]
  6. CARAFATE [Concomitant]
  7. VANCOMYCIN HCL [Concomitant]
  8. ANTIBIOTICS [Concomitant]
  9. DRUG, UNSPECIFIED [Concomitant]

REACTIONS (11)
  - DEPRESSION [None]
  - DRUG INEFFECTIVE [None]
  - EMOTIONAL DISORDER [None]
  - FATIGUE [None]
  - FLATULENCE [None]
  - GASTRIC DISORDER [None]
  - NAUSEA [None]
  - NERVOUSNESS [None]
  - PANCREATITIS [None]
  - PNEUMONIA [None]
  - ROAD TRAFFIC ACCIDENT [None]
